FAERS Safety Report 23331362 (Version 1)
Quarter: 2023Q4

REPORT INFORMATION
  Report Type: Report from Study
  Country: DE (occurrence: DE)
  Receive Date: 20231222
  Receipt Date: 20231222
  Transmission Date: 20240110
  Serious: Yes (Hospitalization)
  Sender: FDA-Public Use
  Company Number: DE-SA-SAC20220225000597

PATIENT
  Age: 53 Year
  Sex: Female
  Weight: 63 kg

DRUGS (12)
  1. ISATUXIMAB [Suspect]
     Active Substance: ISATUXIMAB
     Indication: Plasma cell myeloma
     Dosage: 630 UG
     Route: 042
     Dates: start: 20210913, end: 20210913
  2. ISATUXIMAB [Suspect]
     Active Substance: ISATUXIMAB
     Dosage: UNK
     Route: 041
     Dates: start: 20220221, end: 20220221
  3. ISATUXIMAB [Suspect]
     Active Substance: ISATUXIMAB
     Dosage: 630 UG
     Route: 042
     Dates: start: 20231204, end: 20231204
  4. CARFILZOMIB [Suspect]
     Active Substance: CARFILZOMIB
     Indication: Plasma cell myeloma
     Dosage: UNK
     Route: 042
     Dates: start: 20210913, end: 20210913
  5. CARFILZOMIB [Suspect]
     Active Substance: CARFILZOMIB
     Dosage: UNK
     Route: 042
     Dates: start: 20220221, end: 20220221
  6. CARFILZOMIB [Suspect]
     Active Substance: CARFILZOMIB
     Dosage: 61.2 UG
     Route: 042
     Dates: start: 20231204, end: 20231204
  7. LENALIDOMIDE [Suspect]
     Active Substance: LENALIDOMIDE
     Indication: Plasma cell myeloma
     Dosage: 5 UG
     Route: 048
     Dates: start: 20210913, end: 20210913
  8. LENALIDOMIDE [Suspect]
     Active Substance: LENALIDOMIDE
     Dosage: UNK
     Route: 048
     Dates: start: 20220213, end: 20220213
  9. LENALIDOMIDE [Suspect]
     Active Substance: LENALIDOMIDE
     Dosage: 5 UG
     Route: 048
     Dates: start: 20231213, end: 20231213
  10. DEXAMETHASONE [Concomitant]
     Active Substance: DEXAMETHASONE
     Indication: Plasma cell myeloma
     Dosage: 40 UG
     Route: 042
     Dates: start: 20210913, end: 20210913
  11. DEXAMETHASONE [Concomitant]
     Active Substance: DEXAMETHASONE
     Dosage: UNK
     Route: 042
     Dates: start: 20220207, end: 20220207
  12. DEXAMETHASONE [Concomitant]
     Active Substance: DEXAMETHASONE
     Dosage: 40 UG
     Route: 042
     Dates: start: 20231204, end: 20231204

REACTIONS (2)
  - Febrile infection [Recovered/Resolved]
  - Infection [Not Recovered/Not Resolved]

NARRATIVE: CASE EVENT DATE: 20220222
